FAERS Safety Report 22390813 (Version 2)
Quarter: 2024Q2

REPORT INFORMATION
  Report Type: Report from Study
  Country: DE (occurrence: DE)
  Receive Date: 20230531
  Receipt Date: 20240528
  Transmission Date: 20240715
  Serious: Yes (Hospitalization)
  Sender: FDA-Public Use
  Company Number: DE-TAKEDA-2023TUS051805

PATIENT
  Age: 51 Year
  Sex: Female
  Weight: 69.9 kg

DRUGS (11)
  1. PARATHYROID HORMONE [Suspect]
     Active Substance: PARATHYROID HORMONE
     Indication: Hypoparathyroidism
     Dosage: 25 MICROGRAM, QD
     Route: 058
     Dates: start: 202103
  2. PARATHYROID HORMONE [Suspect]
     Active Substance: PARATHYROID HORMONE
     Indication: Hypoparathyroidism
     Dosage: 25 MICROGRAM, QD
     Route: 058
     Dates: start: 202103
  3. PARATHYROID HORMONE [Suspect]
     Active Substance: PARATHYROID HORMONE
     Indication: Hypoparathyroidism
     Dosage: 25 MICROGRAM, QD
     Route: 058
     Dates: start: 202103
  4. LEVOTHYROXINE SODIUM\LIOTHYRONINE SODIUM [Concomitant]
     Active Substance: LEVOTHYROXINE SODIUM\LIOTHYRONINE SODIUM
     Indication: Hypothyroidism
     Dosage: UNK
     Route: 048
  5. DIAZEPAM [Concomitant]
     Active Substance: DIAZEPAM
     Indication: Tetany
     Dosage: UNK
     Route: 065
  6. MASTODYNON [Concomitant]
     Indication: Hormone level abnormal
     Dosage: UNK
     Route: 048
  7. PREDNISOLONE SODIUM SUCCINATE [Concomitant]
     Active Substance: PREDNISOLONE SODIUM SUCCINATE
     Indication: Thyroglossal cyst
     Dosage: UNK
     Route: 042
     Dates: start: 20221006, end: 20221013
  8. HYDROCORTISONE [Concomitant]
     Active Substance: HYDROCORTISONE
     Indication: Thyroglossal cyst
     Dosage: UNK
     Route: 048
     Dates: start: 20221006, end: 2022
  9. Bepanthen [Concomitant]
     Indication: Thyroglossal cyst
     Dosage: UNK
     Route: 055
     Dates: start: 20221006, end: 2022
  10. VITAMIN D [Concomitant]
     Active Substance: VITAMIN D NOS
     Dosage: 20000 INTERNATIONAL UNIT, 1/WEEK
     Route: 065
  11. MAGNESIUM [Concomitant]
     Active Substance: MAGNESIUM
     Dosage: 300 MILLIGRAM, QD
     Route: 065
     Dates: start: 202207

REACTIONS (1)
  - Branchial cyst [Recovered/Resolved]

NARRATIVE: CASE EVENT DATE: 20221006
